FAERS Safety Report 24974997 (Version 2)
Quarter: 2025Q3

REPORT INFORMATION
  Report Type: Spontaneous
  Country: EU (occurrence: EU)
  Receive Date: 20250217
  Receipt Date: 20250809
  Transmission Date: 20251021
  Serious: Yes (Other)
  Sender: ALEXION PHARMACEUTICALS
  Company Number: EU-AstraZeneca-2024-281818

PATIENT
  Sex: Female

DRUGS (1)
  1. DAPAGLIFLOZIN [Suspect]
     Active Substance: DAPAGLIFLOZIN

REACTIONS (6)
  - Dyspnoea [Unknown]
  - Dysphagia [Unknown]
  - Dizziness [Unknown]
  - Swelling face [Unknown]
  - Choking [Unknown]
  - Pain in extremity [Unknown]
